FAERS Safety Report 7651526-9 (Version None)
Quarter: 2011Q3

REPORT INFORMATION
  Report Type: 
  Country: None (occurrence: None)
  Receive Date: 20110802
  Receipt Date: 20110728
  Transmission Date: 20111222
  Serious: Yes (Death, Hospitalization)
  Sender: FDA-Public Use
  Company Number: PHHY2011US52695

PATIENT
  Sex: Male
  Weight: 67 kg

DRUGS (7)
  1. VYTORIN [Concomitant]
     Dosage: 10-40 DAILY
     Route: 048
  2. EXJADE [Suspect]
     Indication: MYELODYSPLASTIC SYNDROME
     Dosage: 500 MG, DAILY
     Route: 048
     Dates: start: 20110401
  3. INDAPAMIDE [Concomitant]
     Dosage: 1.25 MG, DAILY
     Route: 048
  4. CHOLESTYRAMINE [Concomitant]
     Dosage: TID
     Route: 048
  5. GLUCOPHAGE [Concomitant]
     Dosage: 500 MG, BID
     Route: 048
  6. PRILOSEC [Concomitant]
     Dosage: 20 MG, DAILY
  7. ATENOLOL [Concomitant]
     Dosage: 25 MG, UNK
     Route: 048

REACTIONS (3)
  - VOMITING [None]
  - NAUSEA [None]
  - DIARRHOEA [None]
